FAERS Safety Report 5150265-6 (Version None)
Quarter: 2006Q4

REPORT INFORMATION
  Report Type: 
  Country: None (occurrence: None)
  Receive Date: 20061114
  Receipt Date: 20060529
  Transmission Date: 20070319
  Serious: Yes (Other)
  Sender: FDA-Public Use
  Company Number: FR-BAYER-200610481BFR

PATIENT
  Age: 46 Year
  Sex: Female
  Weight: 96 kg

DRUGS (4)
  1. GLUCOR [Suspect]
     Indication: DIABETES MELLITUS
     Route: 048
     Dates: start: 20060418
  2. ART 50 [Concomitant]
     Indication: UNEVALUABLE EVENT
     Route: 065
  3. NEURONTIN [Concomitant]
     Indication: PAIN IN EXTREMITY
     Route: 065
     Dates: start: 20060419
  4. CERAZETTE [Concomitant]
     Indication: UNEVALUABLE EVENT

REACTIONS (3)
  - DYSPHAGIA [None]
  - FLATULENCE [None]
  - THROAT TIGHTNESS [None]
